FAERS Safety Report 23966084 (Version 5)
Quarter: 2025Q3

REPORT INFORMATION
  Report Type: Report from Study
  Country: CN (occurrence: CN)
  Receive Date: 20240612
  Receipt Date: 20250924
  Transmission Date: 20251020
  Serious: Yes (Other)
  Sender: ROCHE
  Company Number: CN-ROCHE-3569065

PATIENT
  Age: 73 Year
  Sex: Female
  Weight: 49 kg

DRUGS (85)
  1. POLATUZUMAB VEDOTIN [Suspect]
     Active Substance: POLATUZUMAB VEDOTIN
     Indication: Diffuse large B-cell lymphoma
     Route: 042
     Dates: start: 20231020, end: 20231020
  2. POLATUZUMAB VEDOTIN [Suspect]
     Active Substance: POLATUZUMAB VEDOTIN
     Dosage: C2
     Route: 042
     Dates: start: 20231116, end: 20231116
  3. POLATUZUMAB VEDOTIN [Suspect]
     Active Substance: POLATUZUMAB VEDOTIN
     Route: 042
     Dates: start: 20231208
  4. POLATUZUMAB VEDOTIN [Suspect]
     Active Substance: POLATUZUMAB VEDOTIN
     Dosage: C4
     Route: 042
     Dates: start: 20231231
  5. RITUXIMAB [Suspect]
     Active Substance: RITUXIMAB
     Indication: Diffuse large B-cell lymphoma
     Route: 042
     Dates: end: 20231115
  6. RITUXIMAB [Suspect]
     Active Substance: RITUXIMAB
     Route: 042
  7. RITUXIMAB [Suspect]
     Active Substance: RITUXIMAB
     Route: 042
  8. CYCLOPHOSPHAMIDE [Suspect]
     Active Substance: CYCLOPHOSPHAMIDE
     Indication: Diffuse large B-cell lymphoma
     Route: 042
     Dates: start: 20231231, end: 20231231
  9. CYCLOPHOSPHAMIDE [Suspect]
     Active Substance: CYCLOPHOSPHAMIDE
     Route: 042
     Dates: end: 20231116
  10. DOXORUBICIN HYDROCHLORIDE, LIPOSOMAL [Suspect]
     Active Substance: DOXORUBICIN HYDROCHLORIDE
     Indication: Diffuse large B-cell lymphoma
     Route: 042
     Dates: start: 20231021, end: 20231021
  11. DOXORUBICIN HYDROCHLORIDE, LIPOSOMAL [Suspect]
     Active Substance: DOXORUBICIN HYDROCHLORIDE
     Route: 042
     Dates: start: 20231116, end: 20231116
  12. METHYLPREDNISOLONE [Suspect]
     Active Substance: METHYLPREDNISOLONE
     Indication: Diffuse large B-cell lymphoma
     Route: 048
     Dates: start: 20231024, end: 20231024
  13. METHYLPREDNISOLONE [Suspect]
     Active Substance: METHYLPREDNISOLONE
     Route: 048
     Dates: start: 20231021, end: 20231023
  14. METHYLPREDNISOLONE [Suspect]
     Active Substance: METHYLPREDNISOLONE
     Route: 048
     Dates: start: 20231116, end: 20231117
  15. Potassium chloride injection 10% [Concomitant]
     Indication: Prophylaxis
     Route: 048
     Dates: start: 20231013, end: 20231013
  16. Potassium chloride injection 10% [Concomitant]
     Route: 042
     Dates: start: 20231013, end: 20231013
  17. Potassium chloride injection 10% [Concomitant]
     Route: 048
     Dates: start: 20231012, end: 20231012
  18. Potassium chloride injection 10% [Concomitant]
     Route: 042
     Dates: start: 20231015, end: 20231016
  19. Potassium chloride injection 10% [Concomitant]
     Route: 042
     Dates: start: 20231015, end: 20231017
  20. Potassium chloride injection 10% [Concomitant]
     Dates: start: 20231019, end: 20231019
  21. FUROSEMIDE [Concomitant]
     Active Substance: FUROSEMIDE
     Indication: Polyuria
     Route: 042
     Dates: start: 20231001, end: 202310
  22. FUROSEMIDE [Concomitant]
     Active Substance: FUROSEMIDE
     Route: 042
     Dates: start: 20231020, end: 20231020
  23. Omeprazole sodium for injection [Concomitant]
     Route: 042
     Dates: start: 20231001
  24. Moxifloxacin hydrochloride sodium chloride injection [Concomitant]
     Route: 042
     Dates: start: 20231001
  25. AMBROXOL HYDROCHLORIDE [Concomitant]
     Active Substance: AMBROXOL HYDROCHLORIDE
     Route: 042
     Dates: start: 20231012
  26. NIACINAMIDE [Concomitant]
     Active Substance: NIACINAMIDE
     Route: 042
     Dates: start: 20231013, end: 20231017
  27. NIACINAMIDE [Concomitant]
     Active Substance: NIACINAMIDE
     Route: 042
     Dates: start: 20231012, end: 20231012
  28. ASCORBIC ACID [Concomitant]
     Active Substance: ASCORBIC ACID
     Route: 042
     Dates: start: 20231015, end: 20231018
  29. METHYLPREDNISOLONE SODIUM SUCCINATE [Concomitant]
     Active Substance: METHYLPREDNISOLONE SODIUM SUCCINATE
     Route: 042
     Dates: start: 20231020, end: 20231023
  30. METHYLPREDNISOLONE SODIUM SUCCINATE [Concomitant]
     Active Substance: METHYLPREDNISOLONE SODIUM SUCCINATE
     Route: 042
     Dates: start: 20231024, end: 20231024
  31. Sodium bicarbonate injection 5% [Concomitant]
     Route: 042
     Dates: start: 20231020, end: 20231022
  32. Ivabradine hydrochloride tablets [Concomitant]
     Route: 048
     Dates: start: 20231020, end: 20231026
  33. Akynzeo [Concomitant]
     Route: 048
     Dates: start: 20231021, end: 20231021
  34. URSODIOL [Concomitant]
     Active Substance: URSODIOL
     Route: 048
     Dates: start: 20231022, end: 20231031
  35. Ruxolitinib Phosphate Tablets [Concomitant]
     Route: 048
     Dates: start: 20231024, end: 20231031
  36. LIDOCAINE HYDROCHLORIDE [Concomitant]
     Active Substance: LIDOCAINE HYDROCHLORIDE
     Route: 058
     Dates: start: 20231013, end: 20231013
  37. Dopamine hydrochloride injection [Concomitant]
     Dates: start: 20231014, end: 20231014
  38. IBUPROFEN [Concomitant]
     Active Substance: IBUPROFEN
     Indication: Analgesic therapy
     Route: 048
     Dates: start: 20231020, end: 20231020
  39. CETIRIZINE [Concomitant]
     Active Substance: CETIRIZINE HYDROCHLORIDE
     Route: 048
     Dates: start: 20231020, end: 20231020
  40. DEXAMETHASONE SODIUM PHOSPHATE [Concomitant]
     Active Substance: DEXAMETHASONE SODIUM PHOSPHATE
     Route: 042
     Dates: start: 20231029, end: 20231029
  41. DEXAMETHASONE SODIUM PHOSPHATE [Concomitant]
     Active Substance: DEXAMETHASONE SODIUM PHOSPHATE
     Dosage: OTHER ROUTE OF MEDICATION ADMIN- MICRO PUMP INJECTION
     Dates: start: 20231026, end: 20231027
  42. Cortisone acetate tablets [Concomitant]
     Route: 048
     Dates: start: 20231028, end: 20231104
  43. ACYCLOVIR [Concomitant]
     Active Substance: ACYCLOVIR
     Dates: start: 20231104, end: 20231104
  44. HUMAN IMMUNOGLOBULIN G [Concomitant]
     Active Substance: HUMAN IMMUNOGLOBULIN G
  45. RECOMBINANT HUMAN BRAIN NATRIURETIC PEPTIDE [Concomitant]
  46. Human prothrombin [Concomitant]
  47. FIBRINOGEN HUMAN [Concomitant]
     Active Substance: FIBRINOGEN HUMAN
  48. RECOMBINANT HUMAN THROMBOPOIETIN [Concomitant]
     Active Substance: RECOMBINANT HUMAN THROMBOPOIETIN
  49. CALCIUM GLUCONATE [Concomitant]
     Active Substance: CALCIUM GLUCONATE
  50. AMPHOTERICIN B [Concomitant]
     Active Substance: AMPHOTERICIN B
  51. Human granulocyte-stimulating factor [Concomitant]
  52. DIETARY SUPPLEMENT [Concomitant]
     Active Substance: DIETARY SUPPLEMENT
  53. MAGNESIUM SULFATE [Concomitant]
     Active Substance: MAGNESIUM SULFATE
  54. FEBUXOSTAT [Concomitant]
     Active Substance: FEBUXOSTAT
  55. Sodium lactate Ringer [Concomitant]
  56. Carpofungin acetate [Concomitant]
  57. Contizolamide [Concomitant]
  58. SULFAMETHOXAZOLE [Concomitant]
     Active Substance: SULFAMETHOXAZOLE
  59. phosphate sodium [Concomitant]
  60. Naqu heparin calcium [Concomitant]
  61. VALACYCLOVIR HYDROCHLORIDE [Concomitant]
     Active Substance: VALACYCLOVIR HYDROCHLORIDE
  62. VORICONAZOLE [Concomitant]
     Active Substance: VORICONAZOLE
  63. GLUTATHIONE [Concomitant]
     Active Substance: GLUTATHIONE
  64. THROMBIN [Concomitant]
     Active Substance: THROMBIN
  65. Indomethacin suppository [Concomitant]
  66. Compound chlorhexidine gargle [Concomitant]
  67. LACTULOSE [Concomitant]
     Active Substance: LACTULOSE
  68. Levofloxacin sodium chloride [Concomitant]
  69. PROMETHAZINE HYDROCHLORIDE [Concomitant]
     Active Substance: PROMETHAZINE HYDROCHLORIDE
  70. Netupitant Palonosetron [Concomitant]
  71. ENTECAVIR [Concomitant]
     Active Substance: ENTECAVIR
  72. MEROPENEM [Concomitant]
     Active Substance: MEROPENEM
  73. RECOMBINANT HUMAN BRAIN NATRIURETIC PEPTIDE [Concomitant]
  74. NICOTINAMIDE [Concomitant]
     Active Substance: NIACINAMIDE
  75. ALBUMIN HUMAN [Concomitant]
     Active Substance: ALBUMIN HUMAN
  76. FAROPENEM SODIUM [Concomitant]
     Active Substance: FAROPENEM SODIUM
  77. REBAMIPIDE [Concomitant]
     Active Substance: REBAMIPIDE
  78. ENOXAPARIN SODIUM [Concomitant]
     Active Substance: ENOXAPARIN SODIUM
  79. RABEPRAZOLE SODIUM [Concomitant]
     Active Substance: RABEPRAZOLE SODIUM
  80. Aureomycin hydrochloride [Concomitant]
  81. HERBALS [Concomitant]
     Active Substance: HERBALS
  82. LORATADINE [Concomitant]
     Active Substance: LORATADINE
  83. PHOSPHOLIPID [Concomitant]
     Active Substance: PHOSPHOLIPID
  84. ESCITALOPRAM OXALATE [Concomitant]
     Active Substance: ESCITALOPRAM OXALATE
  85. METHYLCOBALAMIN [Concomitant]
     Active Substance: METHYLCOBALAMIN

REACTIONS (27)
  - Haemophagocytic lymphohistiocytosis [Recovered/Resolved]
  - Platelet count decreased [Recovered/Resolved]
  - Anaemia [Recovered/Resolved]
  - Leukopenia [Recovering/Resolving]
  - White blood cell count decreased [Recovered/Resolved]
  - Lymphocyte count decreased [Recovered/Resolved]
  - Neutrophil count decreased [Recovered/Resolved]
  - Hypernatraemia [Recovered/Resolved]
  - Hypomagnesaemia [Recovered/Resolved]
  - Hyperuricaemia [Recovered/Resolved]
  - Hypocalcaemia [Recovered/Resolved]
  - Gamma-glutamyltransferase increased [Not Recovered/Not Resolved]
  - Hypokalaemia [Recovered/Resolved]
  - Gastrointestinal haemorrhage [Recovered/Resolved]
  - Mouth ulceration [Not Recovered/Not Resolved]
  - Deep vein thrombosis [Not Recovered/Not Resolved]
  - Hypoproteinaemia [Recovered/Resolved]
  - Alanine aminotransferase increased [Recovered/Resolved]
  - Hyperkalaemia [Recovered/Resolved]
  - Blood alkaline phosphatase increased [Not Recovered/Not Resolved]
  - Aspergillus infection [Not Recovered/Not Resolved]
  - Hepatitis B surface antibody positive [Not Recovered/Not Resolved]
  - Hepatitis B e antibody positive [Not Recovered/Not Resolved]
  - Hepatitis B core antibody positive [Not Recovered/Not Resolved]
  - Aspartate aminotransferase increased [Recovered/Resolved]
  - COVID-19 [Recovered/Resolved]
  - Gastrointestinal disorder [Not Recovered/Not Resolved]

NARRATIVE: CASE EVENT DATE: 20231021
